FAERS Safety Report 15435880 (Version 2)
Quarter: 2018Q3

REPORT INFORMATION
  Report Type: Report from Study
  Country: None (occurrence: DE)
  Receive Date: 20180927
  Receipt Date: 20180928
  Transmission Date: 20181010
  Serious: Yes (Hospitalization)
  Sender: FDA-Public Use
  Company Number: DE-ABBVIE-18S-062-2498982-00

PATIENT
  Sex: Male

DRUGS (1)
  1. DUODOPA [Suspect]
     Active Substance: CARBIDOPA\LEVODOPA
     Indication: PARKINSON^S DISEASE
     Dosage: MD: 9.5ML, CRD: 4.5ML/H, ED: 2.2ML
     Route: 050
     Dates: start: 20140429

REACTIONS (3)
  - Hyperkinesia [Not Recovered/Not Resolved]
  - Fall [Not Recovered/Not Resolved]
  - Stoma site inflammation [Not Recovered/Not Resolved]
